FAERS Safety Report 9087936 (Version 1)
Quarter: 2013Q1

REPORT INFORMATION
  Report Type: Spontaneous
  Country: US (occurrence: US)
  Receive Date: 20130218
  Receipt Date: 20130218
  Transmission Date: 20140127
  Serious: No
  Sender: FDA-Public Use
  Company Number: US-009507513-1302USA007194

PATIENT
  Sex: Female

DRUGS (1)
  1. COPPERTONE OIL-FREE FACES LOTION SPF 30 [Suspect]
     Indication: PRODUCT USED FOR UNKNOWN INDICATION
     Dosage: UNK, UNKNOWN
     Route: 061
     Dates: start: 20120704

REACTIONS (2)
  - Hyperhidrosis [Unknown]
  - Accidental exposure to product [Unknown]
